FAERS Safety Report 20613050 (Version 1)
Quarter: 2022Q1

REPORT INFORMATION
  Report Type: Spontaneous
  Country: IT (occurrence: IT)
  Receive Date: 20220318
  Receipt Date: 20220318
  Transmission Date: 20220423
  Serious: No
  Sender: FDA-Public Use
  Company Number: IT-009507513-2201ITA003765

PATIENT
  Age: 96 Year
  Sex: Male

DRUGS (10)
  1. MOLNUPIRAVIR [Suspect]
     Active Substance: MOLNUPIRAVIR
     Indication: COVID-19 treatment
     Dosage: 2 DOSES ADMINISTERED
     Route: 048
     Dates: start: 20220113, end: 202201
  2. LANSOPRAZOLE [Concomitant]
     Active Substance: LANSOPRAZOLE
  3. VALSARTAN [Concomitant]
     Active Substance: VALSARTAN
  4. SITAGLIPTIN PHOSPHATE [Concomitant]
     Active Substance: SITAGLIPTIN PHOSPHATE
  5. ASPIRIN [Concomitant]
     Active Substance: ASPIRIN
  6. ESAPENT [Concomitant]
  7. PLAVIX [Concomitant]
     Active Substance: CLOPIDOGREL BISULFATE
  8. TAMSULOSIN HYDROCHLORIDE [Concomitant]
     Active Substance: TAMSULOSIN HYDROCHLORIDE
  9. SIMVASTATIN [Concomitant]
     Active Substance: SIMVASTATIN
  10. LORAZEPAM [Concomitant]
     Active Substance: LORAZEPAM

REACTIONS (2)
  - Tremor [Unknown]
  - Product use issue [Unknown]

NARRATIVE: CASE EVENT DATE: 20220113
